FAERS Safety Report 19643108 (Version 12)
Quarter: 2021Q4

REPORT INFORMATION
  Report Type: Report from Study
  Country: US (occurrence: US)
  Receive Date: 20210730
  Receipt Date: 20211029
  Transmission Date: 20220303
  Serious: Yes (Death, Hospitalization)
  Sender: FDA-Public Use
  Company Number: NVSC2021US163698

PATIENT
  Age: 49 Year
  Sex: Male
  Weight: 64 kg

DRUGS (41)
  1. ILARIS [Suspect]
     Active Substance: CANAKINUMAB
     Indication: Pancreatic carcinoma metastatic
     Dosage: 250 MG, Q4W
     Route: 058
     Dates: start: 20210304, end: 20210702
  2. SPARTALIZUMAB [Suspect]
     Active Substance: SPARTALIZUMAB
     Indication: Pancreatic carcinoma metastatic
     Dosage: 400 MG, Q4W
     Route: 042
     Dates: start: 20210304, end: 20210702
  3. PACLITAXEL [Suspect]
     Active Substance: PACLITAXEL
     Indication: Pancreatic carcinoma metastatic
     Dosage: 125 MG/M2, DAY 1, 8, 15
     Route: 042
     Dates: start: 20210304, end: 20210709
  4. GEMCITABINE HYDROCHLORIDE [Suspect]
     Active Substance: GEMCITABINE HYDROCHLORIDE
     Indication: Pancreatic carcinoma metastatic
     Dosage: 1000 MG/M2, DAY 1, 8, 15
     Route: 042
     Dates: start: 20210304, end: 20210709
  5. INSULIN GLARGINE [Concomitant]
     Active Substance: INSULIN GLARGINE
     Indication: Type 2 diabetes mellitus
     Dosage: 3 ML, QHS
     Route: 058
     Dates: start: 20201001
  6. TRAMADOL [Concomitant]
     Active Substance: TRAMADOL
     Indication: Back pain
     Dosage: 50 MG, PRN
     Route: 048
     Dates: start: 20210214
  7. VITAMIN D3 [Concomitant]
     Active Substance: CHOLECALCIFEROL
     Indication: Nutritional supplementation
     Dosage: 2000 U, QD
     Route: 048
     Dates: start: 20210304
  8. ONDANSETRON [Concomitant]
     Active Substance: ONDANSETRON
     Indication: Prophylaxis of nausea and vomiting
     Dosage: 8 MG, Q8H, PRN
     Route: 048
     Dates: start: 20210304
  9. PROCHLORPERAZINE [Concomitant]
     Active Substance: PROCHLORPERAZINE
     Indication: Prophylaxis of nausea and vomiting
     Dosage: 10 MG, Q8H
     Route: 048
     Dates: start: 20210304
  10. OXYCODONE [Concomitant]
     Active Substance: OXYCODONE
     Indication: Back pain
     Dosage: 5 MG, PRN
     Route: 048
     Dates: start: 20210304
  11. POLYETHYLENE GLYCOLS [Concomitant]
     Active Substance: POLYETHYLENE GLYCOLS
     Indication: Constipation
     Dosage: 17 G, QD
     Route: 048
     Dates: start: 20210301
  12. OXYCODONE AND ACETAMINOPHEN [Concomitant]
     Active Substance: ACETAMINOPHEN\OXYCODONE HYDROCHLORIDE
     Indication: Back pain
     Dosage: 5-325 MG, PRN
     Route: 048
     Dates: start: 20210304
  13. INSULIN LISPRO [Concomitant]
     Active Substance: INSULIN LISPRO
     Indication: Type 2 diabetes mellitus
     Dosage: 100 U/ML, BID
     Route: 058
     Dates: start: 20031001, end: 20210304
  14. INSULIN LISPRO [Concomitant]
     Active Substance: INSULIN LISPRO
     Dosage: UNK
     Route: 065
     Dates: start: 20201001
  15. IMODIUM [Concomitant]
     Active Substance: LOPERAMIDE HYDROCHLORIDE
     Indication: Product used for unknown indication
     Dosage: UNK
     Route: 065
  16. FLAGYL [Concomitant]
     Active Substance: METRONIDAZOLE\METRONIDAZOLE HYDROCHLORIDE
     Indication: Product used for unknown indication
     Dosage: UNK
     Route: 042
     Dates: start: 20210715
  17. LACTOBACILLUS ACIDOPHILUS [Concomitant]
     Active Substance: LACTOBACILLUS ACIDOPHILUS
     Indication: Product used for unknown indication
     Dosage: UNK
     Route: 065
     Dates: start: 20210304
  18. NICOTINE [Concomitant]
     Active Substance: NICOTINE
     Indication: Smoking cessation therapy
     Dosage: 21/24 MG/HR, QD
     Route: 062
     Dates: start: 20210306
  19. FENTANYL [Concomitant]
     Active Substance: FENTANYL
     Indication: Back pain
     Dosage: 25 MG, PRN
     Route: 042
     Dates: start: 20210309, end: 20210309
  20. FENTANYL [Concomitant]
     Active Substance: FENTANYL
     Indication: Pain in extremity
     Dosage: 25/1 MG/HOUR, PRN
     Route: 062
     Dates: start: 20210401
  21. CEFEPIME [Concomitant]
     Active Substance: CEFEPIME HYDROCHLORIDE
     Indication: Influenza like illness
     Dosage: 1000 MG, BID
     Route: 042
     Dates: start: 20210606, end: 20210610
  22. CEFEPIME [Concomitant]
     Active Substance: CEFEPIME HYDROCHLORIDE
     Dosage: UNK
     Route: 065
     Dates: start: 20210715
  23. SODIUM [Concomitant]
     Active Substance: SODIUM
     Indication: Hyponatraemia
     Dosage: UNK
     Route: 065
  24. CEFPODOXIME [Concomitant]
     Active Substance: CEFPODOXIME
     Indication: Influenza like illness
     Dosage: 200 MG, BID
     Route: 048
     Dates: start: 20210601, end: 20210617
  25. CEFPODOXIME [Concomitant]
     Active Substance: CEFPODOXIME
     Dosage: UNK
     Route: 065
     Dates: start: 20210611, end: 20210617
  26. SODIUM CHLORIDE [Concomitant]
     Active Substance: SODIUM CHLORIDE
     Indication: Supportive care
     Dosage: 1 L, ONCE/SINGLE
     Route: 042
     Dates: start: 20210606, end: 20210606
  27. PANTOPRAZOLE [Concomitant]
     Active Substance: PANTOPRAZOLE
     Indication: Prophylaxis
     Dosage: 40 MG, PRN
     Route: 042
     Dates: start: 20210606, end: 20210610
  28. ACETAMINOPHEN [Concomitant]
     Active Substance: ACETAMINOPHEN
     Indication: Pyrexia
     Dosage: 325 MG, PRN
     Route: 048
     Dates: start: 20210606
  29. ACETAMINOPHEN [Concomitant]
     Active Substance: ACETAMINOPHEN
     Indication: Influenza like illness
  30. GABAPENTIN [Concomitant]
     Active Substance: GABAPENTIN
     Indication: Pain in extremity
     Dosage: 200 MG, TID
     Route: 048
     Dates: start: 20210309
  31. PALONOSETRON. [Concomitant]
     Active Substance: PALONOSETRON HYDROCHLORIDE
     Indication: Prophylaxis of nausea and vomiting
     Dosage: 0.25 MG PRE-MED
     Route: 042
     Dates: start: 20210304
  32. SODIUM CHLORIDE [Concomitant]
     Active Substance: SODIUM CHLORIDE
     Indication: Supportive care
     Dosage: 500 MG PRE-MED
     Route: 042
     Dates: start: 20210304
  33. HYDROMORPHONE [Concomitant]
     Active Substance: HYDROMORPHONE
     Indication: Pain in extremity
     Dosage: 0.5 MG, ONCE/SINGLE
     Route: 042
     Dates: start: 20210306, end: 20210306
  34. HYDROMORPHONE [Concomitant]
     Active Substance: HYDROMORPHONE
     Dosage: 0.1 MG PCA PUMP
     Route: 042
     Dates: start: 20210306, end: 20210309
  35. HYDROMORPHONE [Concomitant]
     Active Substance: HYDROMORPHONE
     Dosage: 0.5 MG PCA PUMP
     Route: 042
     Dates: start: 20210309, end: 20210309
  36. HYDROMORPHONE [Concomitant]
     Active Substance: HYDROMORPHONE
     Dosage: 0.2 MG, ONCE/SINGLE
     Route: 042
     Dates: start: 20210310, end: 20210310
  37. HEPARIN [Concomitant]
     Active Substance: HEPARIN SODIUM
     Indication: Thrombosis prophylaxis
     Dosage: 4000 UNITS, ONCE
     Route: 058
     Dates: start: 20210306, end: 20210306
  38. HEPARIN [Concomitant]
     Active Substance: HEPARIN SODIUM
     Dosage: 25000 UNITS CONTINUOUS
     Route: 042
     Dates: start: 20210306, end: 20210309
  39. CLOPIDOGREL [Concomitant]
     Active Substance: CLOPIDOGREL BISULFATE
     Indication: Thrombosis prophylaxis
     Dosage: 300 MG, ONCE/SINGLE
     Route: 048
     Dates: start: 20210310, end: 20210310
  40. CLOPIDOGREL [Concomitant]
     Active Substance: CLOPIDOGREL BISULFATE
     Dosage: 75 MG, ONCE/SINGLE
     Route: 048
     Dates: start: 20210311, end: 20210312
  41. VANCOMYCIN [Concomitant]
     Active Substance: VANCOMYCIN
     Indication: Influenza like illness
     Dosage: UNK
     Route: 042
     Dates: start: 20210606, end: 20210606

REACTIONS (4)
  - Malignant neoplasm progression [Fatal]
  - Pancreatic carcinoma [Fatal]
  - Liver abscess [Recovered/Resolved]
  - Enterocolitis [Recovered/Resolved]

NARRATIVE: CASE EVENT DATE: 20210713
